FAERS Safety Report 23980795 (Version 1)
Quarter: 2024Q2

REPORT INFORMATION
  Report Type: Spontaneous
  Country: FR (occurrence: FR)
  Receive Date: 20240617
  Receipt Date: 20240617
  Transmission Date: 20240716
  Serious: Yes (Disabling)
  Sender: FDA-Public Use
  Company Number: None

PATIENT
  Age: 33 Year
  Sex: Female
  Weight: 58 kg

DRUGS (1)
  1. COSENTYX [Suspect]
     Active Substance: SECUKINUMAB
     Indication: Psoriatic arthropathy
     Dosage: 300 MG, QW (300 MG/SEM)
     Route: 058
     Dates: start: 20240429

REACTIONS (1)
  - Holmes-Adie pupil [Not Recovered/Not Resolved]

NARRATIVE: CASE EVENT DATE: 20240516
